FAERS Safety Report 9790589 (Version 2)
Quarter: 2014Q1

REPORT INFORMATION
  Report Type: Spontaneous
  Country: US (occurrence: US)
  Receive Date: 20131231
  Receipt Date: 20140114
  Transmission Date: 20141002
  Serious: Yes (Other)
  Sender: FDA-Public Use
  Company Number: US-MYLANLABS-2013S1028590

PATIENT
  Age: 58 Year
  Sex: Female

DRUGS (14)
  1. ATENOLOL TABLETS, USP [Suspect]
     Indication: BLOOD PRESSURE
     Route: 048
     Dates: start: 20131123, end: 20131215
  2. ATENOLOL TABLETS, USP [Suspect]
     Indication: HYPERTENSION
     Route: 048
     Dates: start: 20131123, end: 20131215
  3. ATENOLOL TABLETS, USP [Suspect]
     Indication: BLOOD PRESSURE
     Route: 048
     Dates: start: 20131215
  4. ATENOLOL TABLETS, USP [Suspect]
     Indication: HYPERTENSION
     Route: 048
     Dates: start: 20131215
  5. ANTIBIOTICS [Concomitant]
  6. NORCO [Concomitant]
     Indication: PAIN
  7. ANXIOLYTICS [Concomitant]
  8. ANTIDEPRESSANTS [Concomitant]
  9. NEURONTIN [Concomitant]
     Indication: NEURALGIA
  10. ANTIMIGRAINE PREPARATIONS [Concomitant]
  11. MONUROL [Concomitant]
  12. ASPIRIN W/BUTALBITAL/CAFFEINE/CODEINE PHOSPH. [Concomitant]
  13. CLONAZEPAM [Concomitant]
  14. ROPINIROLE [Concomitant]

REACTIONS (7)
  - Drug dispensing error [Not Recovered/Not Resolved]
  - Neck pain [Not Recovered/Not Resolved]
  - Rash [Not Recovered/Not Resolved]
  - Pruritus [Not Recovered/Not Resolved]
  - Contusion [Not Recovered/Not Resolved]
  - Headache [Not Recovered/Not Resolved]
  - Dizziness [Not Recovered/Not Resolved]
